FAERS Safety Report 12953635 (Version 1)
Quarter: 2016Q4

REPORT INFORMATION
  Report Type: Spontaneous
  Country: US (occurrence: US)
  Receive Date: 20161117
  Receipt Date: 20161117
  Transmission Date: 20170207
  Serious: No
  Sender: FDA-Public Use
  Company Number: US-SHIRE-US201616791

PATIENT
  Sex: Male

DRUGS (1)
  1. XIIDRA [Suspect]
     Active Substance: LIFITEGRAST
     Indication: PRODUCT USED FOR UNKNOWN INDICATION
     Dosage: UNK UNK, UNKNOWN; REPORTED AS 5% SOLUTION
     Route: 047
     Dates: start: 201611

REACTIONS (6)
  - Instillation site discomfort [Unknown]
  - Instillation site irritation [Unknown]
  - Instillation site pruritus [Unknown]
  - Administration site hypersensitivity [Unknown]
  - Dysgeusia [Unknown]
  - Instillation site pain [Unknown]

NARRATIVE: CASE EVENT DATE: 201611
